FAERS Safety Report 4916506-2 (Version None)
Quarter: 2006Q1

REPORT INFORMATION
  Report Type: 
  Country: None (occurrence: None)
  Receive Date: 20060220
  Receipt Date: 20060208
  Transmission Date: 20060701
  Serious: Yes (Other)
  Sender: FDA-Public Use
  Company Number: PHBS2006JP02296

PATIENT
  Age: 73 Year
  Sex: Female

DRUGS (1)
  1. SANDOSTATIN [Suspect]
     Indication: ACROMEGALY
     Route: 065

REACTIONS (3)
  - BRADYCARDIA [None]
  - CARDIAC PACEMAKER INSERTION [None]
  - SICK SINUS SYNDROME [None]
